FAERS Safety Report 5208734-6 (Version None)
Quarter: 2007Q1

REPORT INFORMATION
  Report Type: 
  Country: None (occurrence: None)
  Receive Date: 20070116
  Receipt Date: 20070109
  Transmission Date: 20070707
  Serious: Yes (Life-Threatening)
  Sender: FDA-Public Use
  Company Number: DE-BAYER-200611312BVD

PATIENT
  Age: 56 Year
  Sex: Male
  Weight: 79 kg

DRUGS (12)
  1. ASPIRIN [Suspect]
     Indication: HEADACHE
     Route: 048
     Dates: start: 20060201, end: 20060309
  2. VALOCORDIN [Concomitant]
     Indication: ANXIETY
     Route: 048
     Dates: start: 20030101, end: 20060309
  3. TRIMIPRAMINE MALEATE [Concomitant]
     Route: 048
     Dates: start: 20030101, end: 20060309
  4. LAXOBERAL [Concomitant]
     Route: 048
     Dates: start: 19960101, end: 20060308
  5. DULCOLAX [Concomitant]
     Route: 048
     Dates: start: 19960101, end: 20060205
  6. ARUTIMOL [Concomitant]
     Route: 031
     Dates: start: 19960101, end: 20060403
  7. LACRISIC [Concomitant]
     Route: 031
     Dates: start: 19960101, end: 20060403
  8. NON-OVLON [Concomitant]
     Route: 048
     Dates: start: 19700101, end: 19960401
  9. TAMOXIFEN CITRATE [Concomitant]
     Route: 048
     Dates: start: 20041201, end: 20041201
  10. ARIMIDEX [Concomitant]
     Route: 048
     Dates: start: 20041101, end: 20050125
  11. ZOMETA [Concomitant]
     Dates: start: 20060701
  12. FASLODEX [Concomitant]
     Dates: start: 20060811

REACTIONS (1)
  - THROMBOTIC THROMBOCYTOPENIC PURPURA [None]
